FAERS Safety Report 15703980 (Version 1)
Quarter: 2018Q4

REPORT INFORMATION
  Report Type: Spontaneous
  Country: CL (occurrence: CL)
  Receive Date: 20181210
  Receipt Date: 20181210
  Transmission Date: 20190205
  Serious: Yes (Other)
  Sender: FDA-Public Use
  Company Number: CL-TERSERA THERAPEUTICS LLC-TSR2018002682

PATIENT

DRUGS (1)
  1. ZOLADEX [Suspect]
     Active Substance: GOSERELIN ACETATE
     Indication: NEOPLASM MALIGNANT
     Dosage: 10.8 MILLIGRAM, Q3 MONTHS
     Route: 058

REACTIONS (1)
  - Malignant neoplasm progression [Unknown]
